FAERS Safety Report 4816004-0 (Version None)
Quarter: 2005Q4

REPORT INFORMATION
  Report Type: 
  Country: None (occurrence: None)
  Receive Date: 20051026
  Receipt Date: 20050330
  Transmission Date: 20060501
  Serious: Yes (Disabling, Other)
  Sender: FDA-Public Use
  Company Number: 2005025530

PATIENT
  Age: 59 Year
  Sex: Male
  Weight: 97.5234 kg

DRUGS (5)
  1. LIPITOR [Suspect]
     Indication: BLOOD CHOLESTEROL INCREASED
     Dosage: 10 MG (1 IN 1 D), ORAL
     Route: 048
     Dates: end: 20050201
  2. ETODOLAC [Concomitant]
  3. NAPRONTAG FLEX (CARISOPRODOL, NAPROXEN) [Concomitant]
  4. TOPROL (METOPROLOL) [Concomitant]
  5. TAMSULOSIN HYDROCHLORIDE (TAMSULOSIN HYDROCHLORIDE) [Concomitant]

REACTIONS (9)
  - ABASIA [None]
  - AMNESIA [None]
  - ARTHRALGIA [None]
  - BACK PAIN [None]
  - BURNING SENSATION [None]
  - MUSCULOSKELETAL STIFFNESS [None]
  - NERVE COMPRESSION [None]
  - PAIN IN EXTREMITY [None]
  - PARAESTHESIA [None]
